FAERS Safety Report 12120348 (Version 1)
Quarter: 2016Q1

REPORT INFORMATION
  Report Type: Spontaneous
  Country: IT (occurrence: IT)
  Receive Date: 20160226
  Receipt Date: 20160226
  Transmission Date: 20160526
  Serious: Yes (Other)
  Sender: FDA-Public Use
  Company Number: IT-CELGENE-ITA-2016023866

PATIENT

DRUGS (1)
  1. REVLIMID [Suspect]
     Active Substance: LENALIDOMIDE
     Indication: MANTLE CELL LYMPHOMA
     Route: 048

REACTIONS (4)
  - Mantle cell lymphoma [Unknown]
  - Toxicity to various agents [Unknown]
  - Lung neoplasm malignant [Unknown]
  - Myelodysplastic syndrome [Unknown]
